FAERS Safety Report 4705222-8 (Version None)
Quarter: 2005Q2

REPORT INFORMATION
  Report Type: 
  Country: None (occurrence: None)
  Receive Date: 20050630
  Receipt Date: 20050630
  Transmission Date: 20051028
  Serious: Yes (Other)
  Sender: FDA-Public Use
  Company Number: None

PATIENT
  Sex: Female

DRUGS (3)
  1. TRI-SPRINTEC [Suspect]
     Indication: CONTRACEPTION
     Dosage: ONE TAB DAILY
  2. TRI-SPRINTEC [Suspect]
     Indication: DYSMENORRHOEA
     Dosage: ONE TAB DAILY
  3. TRI-SPRINTEC [Suspect]
     Indication: PREMENSTRUAL SYNDROME
     Dosage: ONE TAB DAILY

REACTIONS (3)
  - ACNE [None]
  - HYPOMENORRHOEA [None]
  - PHARMACEUTICAL PRODUCT COMPLAINT [None]
